FAERS Safety Report 24710100 (Version 1)
Quarter: 2024Q4

REPORT INFORMATION
  Report Type: Spontaneous
  Country: US (occurrence: US)
  Receive Date: 20241209
  Receipt Date: 20241209
  Transmission Date: 20250115
  Serious: No
  Sender: PADAGIS
  Company Number: US-PADAGIS-2024PAD01868

PATIENT

DRUGS (21)
  1. MUPIROCIN [Suspect]
     Active Substance: MUPIROCIN
     Indication: Netherton^s syndrome
     Dosage: UNK
     Route: 061
  2. CYCLOSPORINE [Suspect]
     Active Substance: CYCLOSPORINE
     Indication: Rash
     Dosage: 100 MG, BID
     Route: 065
  3. CLINDAMYCIN PHOSPHATE [Suspect]
     Active Substance: CLINDAMYCIN PHOSPHATE
     Indication: Netherton^s syndrome
     Dosage: UNK
     Route: 061
  4. ECONAZOLE NITRATE [Suspect]
     Active Substance: ECONAZOLE NITRATE
     Indication: Rash
     Dosage: UNK
     Route: 061
  5. CLINDAMYCIN [Suspect]
     Active Substance: CLINDAMYCIN
     Indication: Netherton^s syndrome
     Dosage: UNK
     Route: 048
  6. TACROLIMUS [Suspect]
     Active Substance: TACROLIMUS
     Indication: Rash
     Dosage: UNK
     Route: 061
  7. PIMECROLIMUS [Suspect]
     Active Substance: PIMECROLIMUS
     Indication: Rash
     Dosage: UNK
     Route: 061
  8. ITRACONAZOLE [Suspect]
     Active Substance: ITRACONAZOLE
     Indication: Rash
     Dosage: 200 MG, QD
     Route: 061
  9. IVERMECTIN [Suspect]
     Active Substance: IVERMECTIN
     Indication: Rash
     Dosage: 15 MG 2 DOSES WEEKLY
     Route: 048
  10. ACITRETIN [Suspect]
     Active Substance: ACITRETIN
     Indication: Rash
     Dosage: 10 MG
     Route: 065
  11. DAPSONE [Suspect]
     Active Substance: DAPSONE
     Indication: Rash
     Dosage: 100 MG, QD
     Route: 065
  12. DOXYCYCLINE [Suspect]
     Active Substance: DOXYCYCLINE
     Indication: Rash
     Dosage: 100 MG, BID
     Route: 065
  13. PREDNISONE [Suspect]
     Active Substance: PREDNISONE
     Indication: Rash
     Dosage: 60 MG 5WEEKS
     Route: 048
  14. OMALIZUMAB [Suspect]
     Active Substance: OMALIZUMAB
     Indication: Rash
     Dosage: (BIWEEKLY INJECTIONS FOR 2 MONTHS
     Route: 065
  15. CEPHALEXIN [Suspect]
     Active Substance: CEPHALEXIN
     Indication: Netherton^s syndrome
     Dosage: UNK
     Route: 048
  16. AZITHROMYCIN [Suspect]
     Active Substance: AZITHROMYCIN
     Indication: Netherton^s syndrome
     Dosage: UNK
     Route: 048
  17. AMOXICILLIN\CLAVULANATE POTASSIUM [Suspect]
     Active Substance: AMOXICILLIN\CLAVULANATE POTASSIUM
     Indication: Netherton^s syndrome
     Dosage: UNK
     Route: 048
  18. LINEZOLID [Suspect]
     Active Substance: LINEZOLID
     Indication: Netherton^s syndrome
     Route: 048
  19. ADALIMUMAB [Concomitant]
     Active Substance: ADALIMUMAB
     Indication: Rash
     Dosage: 40 MG
     Route: 065
  20. ADALIMUMAB [Concomitant]
     Active Substance: ADALIMUMAB
     Dosage: 80 MG
     Route: 065
  21. HYDROCORTISONE [Concomitant]
     Active Substance: HYDROCORTISONE
     Indication: Netherton^s syndrome
     Dosage: UNK
     Route: 065

REACTIONS (3)
  - Therapy non-responder [Unknown]
  - Therapy partial responder [Unknown]
  - Product use in unapproved indication [Unknown]
